FAERS Safety Report 24551315 (Version 1)
Quarter: 2024Q4

REPORT INFORMATION
  Report Type: Report from Study
  Country: ES (occurrence: ES)
  Receive Date: 20241025
  Receipt Date: 20241025
  Transmission Date: 20250114
  Serious: Yes (Other)
  Sender: ABBVIE
  Company Number: ES-ABBVIE-5939584

PATIENT
  Sex: Female

DRUGS (9)
  1. CARBIDOPA\LEVODOPA [Suspect]
     Active Substance: CARBIDOPA\LEVODOPA
     Indication: Parkinson^s disease
     Dosage: 240 MG/ML + 12 MG/ML SOLUCION PARA PERFUSION , ^LAST DOSE ADMINISTERED 2024^
     Route: 058
     Dates: start: 20240829
  2. CARBIDOPA\LEVODOPA [Suspect]
     Active Substance: CARBIDOPA\LEVODOPA
     Dosage: DOSE ADJUSTMENT, HIGH FLOW 0.40 ML/H AND BASELINE FLOW 0.35 ML/H , ^LAST DOSE ADMINISTERED SEP 20...
     Route: 058
     Dates: start: 20240913
  3. CARBIDOPA\LEVODOPA [Suspect]
     Active Substance: CARBIDOPA\LEVODOPA
     Dosage: 0.03 ML/H HIGH, BASE AND LOW FLOW.HIGH FLOW DOSES 0.48 ML/H,BASE FLOW 0.43 ML/H,LOW FLOW 0.38 ML/H
     Route: 058
     Dates: start: 20240927
  4. CARBIDOPA\LEVODOPA [Suspect]
     Active Substance: CARBIDOPA\LEVODOPA
     Dosage: HIGH FLOW 0.45 ML/H, BASAL FLOW 0.40 ML/H AND LOW FLOW 0.35 ML/H/ , ^LAST DOSE ADMINISTERED SEP 2...
     Route: 058
     Dates: start: 20240927
  5. INBRIJA [Suspect]
     Active Substance: LEVODOPA
     Indication: Product used for unknown indication
     Route: 055
     Dates: start: 2024
  6. SINEMET [Concomitant]
     Active Substance: CARBIDOPA\LEVODOPA
     Indication: Product used for unknown indication
     Route: 048
     Dates: start: 2024
  7. XADAGO [Concomitant]
     Active Substance: SAFINAMIDE MESYLATE
     Indication: Product used for unknown indication
     Dates: start: 20240912
  8. CARBIDOPA\LEVODOPA [Concomitant]
     Active Substance: CARBIDOPA\LEVODOPA
     Indication: Product used for unknown indication
     Dosage: BASELINE FLOW FROM 0.35 ML/H AT NIGHT TO A HIGH FLOW OF 0.4 ML/
  9. CARBIDOPA\LEVODOPA [Concomitant]
     Active Substance: CARBIDOPA\LEVODOPA
     Indication: Product used for unknown indication
     Dosage: TWICE SINEMET PLUS + EXTRA DOSE OF 0.30 ML

REACTIONS (11)
  - Asphyxia [Unknown]
  - Hallucination, visual [Unknown]
  - Drug intolerance [Unknown]
  - Freezing phenomenon [Not Recovered/Not Resolved]
  - On and off phenomenon [Unknown]
  - Administration site nodule [Recovered/Resolved]
  - Motor dysfunction [Recovering/Resolving]
  - Hallucination [Unknown]
  - Device occlusion [Unknown]
  - Therapeutic product effect incomplete [Unknown]
  - Malaise [Unknown]

NARRATIVE: CASE EVENT DATE: 20240101
